FAERS Safety Report 21133792 (Version 1)
Quarter: 2022Q3

REPORT INFORMATION
  Report Type: Spontaneous
  Country: IT (occurrence: IT)
  Receive Date: 20220726
  Receipt Date: 20220726
  Transmission Date: 20221027
  Serious: Yes (Other)
  Sender: FDA-Public Use
  Company Number: IT-MYLANLABS-2022M1081238

PATIENT
  Age: 73 Year
  Sex: Female

DRUGS (4)
  1. PACLITAXEL [Suspect]
     Active Substance: PACLITAXEL
     Indication: Invasive lobular breast carcinoma
     Dosage: 175 MILLIGRAM/SQ. METER (FROM FEBRUARY 2020 TO MAY 2020)
     Route: 065
     Dates: start: 202002, end: 202005
  2. EPIRUBICIN [Suspect]
     Active Substance: EPIRUBICIN
     Indication: Invasive lobular breast carcinoma
     Dosage: 90 MILLIGRAM/SQ. METER (FROM FEBRUARY 2020 TO MAY 2020)
     Route: 065
     Dates: start: 202002, end: 202005
  3. CYCLOPHOSPHAMIDE [Suspect]
     Active Substance: CYCLOPHOSPHAMIDE
     Indication: Invasive lobular breast carcinoma
     Dosage: 600 MILLIGRAM/SQ. METER (FROM FEBRUARY 2020 TO MAY 2020)
     Route: 065
     Dates: start: 202002, end: 202005
  4. LETROZOLE [Concomitant]
     Active Substance: LETROZOLE
     Indication: Invasive lobular breast carcinoma
     Dosage: 2.5 MILLIGRAM
     Route: 065
     Dates: start: 202006

REACTIONS (2)
  - Drug ineffective [Unknown]
  - Disease progression [Unknown]

NARRATIVE: CASE EVENT DATE: 20201101
